FAERS Safety Report 26034207 (Version 1)
Quarter: 2025Q4

REPORT INFORMATION
  Report Type: Spontaneous
  Country: EU (occurrence: EU)
  Receive Date: 20251112
  Receipt Date: 20251112
  Transmission Date: 20260118
  Serious: Yes (Hospitalization, Other)
  Sender: AMGEN
  Company Number: EU-AMGEN-NLDSP2025218483

PATIENT

DRUGS (1)
  1. FILGRASTIM [Suspect]
     Active Substance: FILGRASTIM
     Indication: Neutropenia
     Dosage: 30 MILLION UNIT, QD (FROM DAY 5 AFTER TRANSPLANT UNTIL NEUTROPHIL RECOVERY)
     Route: 065

REACTIONS (2)
  - Febrile neutropenia [Unknown]
  - Infection [Unknown]
